FAERS Safety Report 12340703 (Version 1)
Quarter: 2016Q2

REPORT INFORMATION
  Report Type: Spontaneous
  Country: US (occurrence: None)
  Receive Date: 20160505
  Receipt Date: 20160505
  Transmission Date: 20160815
  Serious: No
  Sender: FDA-Public Use
  Company Number: None

PATIENT
  Sex: Male

DRUGS (1)
  1. MORPHINE [Suspect]
     Active Substance: MORPHINE

REACTIONS (7)
  - Tremor [None]
  - Impaired driving ability [None]
  - Neck pain [None]
  - Pain in extremity [None]
  - Chest pain [None]
  - Movement disorder [None]
  - Post procedural complication [None]
